FAERS Safety Report 7525319-7 (Version None)
Quarter: 2011Q2

REPORT INFORMATION
  Report Type: 
  Country: None (occurrence: None)
  Receive Date: 20110606
  Receipt Date: 20110531
  Transmission Date: 20111010
  Serious: Yes (Death, Life-Threatening)
  Sender: FDA-Public Use
  Company Number: JP-PFIZER INC-2011116904

PATIENT
  Age: 71 Year
  Sex: Male
  Weight: 60 kg

DRUGS (9)
  1. TEMSIROLIMUS [Suspect]
     Dosage: 25 MG, WEEKLY
     Dates: start: 20110222, end: 20110308
  2. DECADRON [Concomitant]
     Indication: PAIN
     Dosage: 2 MG, 1X/DAY
     Route: 048
  3. OXYCONTIN [Concomitant]
     Dosage: 30 MG, 1X/DAY
     Route: 048
     Dates: start: 20110204, end: 20110301
  4. FENTANYL [Concomitant]
     Dosage: 12.6 MG EVERY 72 HOURS
     Dates: start: 20110322, end: 20110329
  5. TEMSIROLIMUS [Suspect]
     Dosage: 25 MG
     Dates: start: 20110201, end: 20110201
  6. OXYCONTIN [Concomitant]
     Indication: PAIN
     Dosage: 25 MG, 1X/DAY
     Route: 048
     Dates: end: 20110203
  7. TEMSIROLIMUS [Suspect]
     Indication: RENAL CELL CARCINOMA
     Dosage: 25 MG
     Dates: start: 20110125, end: 20110125
  8. FENTANYL [Concomitant]
     Dosage: 8.4 MG EVERY 72 HOURS
     Dates: start: 20110308, end: 20110321
  9. FENTANYL [Concomitant]
     Indication: PAIN
     Dosage: 4.2 MG, EVERY 72 HOURS
     Dates: start: 20110301, end: 20110307

REACTIONS (3)
  - HYPOXIA [None]
  - PULMONARY FIBROSIS [None]
  - DYSPNOEA [None]
